FAERS Safety Report 11020797 (Version 2)
Quarter: 2015Q2

REPORT INFORMATION
  Report Type: Spontaneous
  Country: US (occurrence: US)
  Receive Date: 20150413
  Receipt Date: 20150514
  Transmission Date: 20150821
  Serious: Yes (Hospitalization)
  Sender: FDA-Public Use
  Company Number: US-BIOGENIDEC-2015BI047742

PATIENT
  Sex: Male

DRUGS (13)
  1. BUPROPION HCI [Concomitant]
  2. ATACAND [Concomitant]
     Active Substance: CANDESARTAN CILEXETIL
  3. FISH OIL +D3 [Concomitant]
  4. LIVALO [Concomitant]
     Active Substance: PITAVASTATIN CALCIUM
  5. METOPROLOL SUCCINATE. [Concomitant]
     Active Substance: METOPROLOL SUCCINATE
  6. WARFARIN SODIUM. [Concomitant]
     Active Substance: WARFARIN SODIUM
  7. QUINAPRIL HCI [Concomitant]
  8. TAMSULOSIN HCI [Concomitant]
  9. CALTRATE 600+D [Concomitant]
  10. DILTIAZEM HCI [Concomitant]
  11. TECFIDERA [Suspect]
     Active Substance: DIMETHYL FUMARATE
     Indication: MULTIPLE SCLEROSIS
     Route: 048
     Dates: start: 201501
  12. ASPIRIN. [Concomitant]
     Active Substance: ASPIRIN
  13. CITALOPRAM HYDROBROMIDE. [Concomitant]
     Active Substance: CITALOPRAM HYDROBROMIDE

REACTIONS (2)
  - Asthenia [Unknown]
  - Influenza [Unknown]
